FAERS Safety Report 9596376 (Version 3)
Quarter: 2013Q4

REPORT INFORMATION
  Report Type: Spontaneous
  Country: US (occurrence: US)
  Receive Date: 20131004
  Receipt Date: 20131017
  Transmission Date: 20140711
  Serious: Yes (Hospitalization)
  Sender: FDA-Public Use
  Company Number: US-ACTELION-A-NJ2013-89369

PATIENT
  Age: 66 Year
  Sex: Male

DRUGS (13)
  1. VENTAVIS [Suspect]
     Indication: PULMONARY ARTERIAL HYPERTENSION
     Dosage: UNK
     Route: 055
     Dates: start: 20130831, end: 20130927
  2. VENTAVIS [Suspect]
     Dosage: UNK
     Route: 055
     Dates: start: 2013
  3. SILDENAFIL [Concomitant]
  4. PLAVIX [Concomitant]
  5. LETAIRIS [Concomitant]
  6. ADCIRCA [Concomitant]
  7. ASA [Concomitant]
  8. PREVACID [Concomitant]
  9. SUCRALFATE [Concomitant]
  10. ADVAIR [Concomitant]
  11. LASIX [Concomitant]
  12. DILTIAZEM [Concomitant]
  13. METOPROLOL [Concomitant]

REACTIONS (5)
  - Coronary artery occlusion [Unknown]
  - Bradycardia [Unknown]
  - Heart rate decreased [Unknown]
  - Stent placement [Recovering/Resolving]
  - Cardiac pacemaker insertion [Recovering/Resolving]
